FAERS Safety Report 5474079-2 (Version None)
Quarter: 2007Q4

REPORT INFORMATION
  Report Type: 
  Country: None (occurrence: None)
  Receive Date: 20071002
  Receipt Date: 20070920
  Transmission Date: 20080405
  Serious: Yes (Hospitalization)
  Sender: FDA-Public Use
  Company Number: PHHO2007US15872

PATIENT
  Age: 79 Year
  Sex: Female

DRUGS (4)
  1. PANCREASE [Concomitant]
  2. OCTREOTIDE ACETATE [Concomitant]
  3. RAD001 VS PLACEBO [Suspect]
     Indication: CARCINOID TUMOUR
     Route: 048
     Dates: start: 20070525, end: 20070919
  4. SANDOSTATIN LAR [Suspect]
     Indication: CARCINOID TUMOUR
     Dosage: DOUBLE BLIND
     Route: 048
     Dates: start: 20070525, end: 20070919

REACTIONS (2)
  - ABDOMINAL PAIN [None]
  - ILEUS [None]
